FAERS Safety Report 8558118-8 (Version None)
Quarter: 2012Q3

REPORT INFORMATION
  Report Type: 
  Country: None (occurrence: None)
  Receive Date: 20120801
  Receipt Date: 20120724
  Transmission Date: 20120928
  Serious: Yes (Other)
  Sender: FDA-Public Use
  Company Number: RU-ABBOTT-12P-251-0961602-00

PATIENT
  Age: 3 Year
  Sex: Female

DRUGS (5)
  1. DEPAKENE [Suspect]
     Route: 048
     Dates: start: 20120601, end: 20120709
  2. VALPROATE SODIUM [Concomitant]
     Indication: PRODUCT USED FOR UNKNOWN INDICATION
  3. VALPROATE SODIUM [Concomitant]
     Indication: PRODUCT USED FOR UNKNOWN INDICATION
  4. DEPAKENE [Suspect]
     Indication: EPILEPSY
     Route: 048
     Dates: start: 20120401, end: 20120601
  5. DEPAKENE [Suspect]
     Dates: start: 20120709

REACTIONS (5)
  - CONDITION AGGRAVATED [None]
  - DRUG INEFFECTIVE [None]
  - PRODUCT COUNTERFEIT [None]
  - EPILEPSY [None]
  - MUSCLE TWITCHING [None]
